FAERS Safety Report 18880216 (Version 5)
Quarter: 2021Q2

REPORT INFORMATION
  Report Type: Report from Study
  Country: US (occurrence: US)
  Receive Date: 20210211
  Receipt Date: 20210619
  Transmission Date: 20210717
  Serious: Yes (Hospitalization)
  Sender: FDA-Public Use
  Company Number: US-ROCHE-2745897

PATIENT
  Age: 49 Year
  Sex: Female
  Weight: 94.3 kg

DRUGS (28)
  1. POTASSIUM CHLORIDE. [Concomitant]
     Active Substance: POTASSIUM CHLORIDE
  2. COLACE [Concomitant]
     Active Substance: DOCUSATE SODIUM
     Indication: CONSTIPATION
  3. GABAPENTIN. [Concomitant]
     Active Substance: GABAPENTIN
  4. MIRALAX [Concomitant]
     Active Substance: POLYETHYLENE GLYCOL 3350
  5. HYDROCORTISONE. [Concomitant]
     Active Substance: HYDROCORTISONE
  6. SENNA [Concomitant]
     Active Substance: SENNA LEAF\SENNOSIDES\SENNOSIDES A AND B
     Dates: start: 20210111
  7. OMEPRAZOLE. [Concomitant]
     Active Substance: OMEPRAZOLE
  8. CHLORHEXIDINE [Concomitant]
     Active Substance: CHLORHEXIDINE
  9. CLONAZEPAM. [Concomitant]
     Active Substance: CLONAZEPAM
  10. METRONIDAZOLE. [Concomitant]
     Active Substance: METRONIDAZOLE
  11. COMPAZINE [PROCHLORPERAZINE EDISYLATE] [Concomitant]
     Active Substance: PROCHLORPERAZINE EDISYLATE
     Indication: NAUSEA
     Route: 065
     Dates: start: 20200821
  12. DRISDOL [Concomitant]
     Active Substance: ERGOCALCIFEROL
  13. MAGNESIUM OXIDE. [Concomitant]
     Active Substance: MAGNESIUM OXIDE
  14. SIMETHICONE (DIMETHICONE) [Concomitant]
     Active Substance: DIMETHICONE
  15. BISACODYL. [Concomitant]
     Active Substance: BISACODYL
  16. COBIMETINIB. [Suspect]
     Active Substance: COBIMETINIB
     Indication: RECTAL CANCER
     Dosage: ON 22/DEC/2020, THE SUBJECT RECEIVED THE LAST DOSE OF STUDY DRUG COBIMETINIB PRIOR TO EVENT ONSET.?O
     Route: 048
     Dates: start: 20201214, end: 20210125
  17. CHLORHEXIDINE GLUCONATE. [Concomitant]
     Active Substance: CHLORHEXIDINE GLUCONATE
  18. ACETAMINOPHEN. [Concomitant]
     Active Substance: ACETAMINOPHEN
     Indication: PAIN
  19. ACETAMINOPHEN. [Concomitant]
     Active Substance: ACETAMINOPHEN
     Indication: PYREXIA
  20. DEXAMETHASONE. [Concomitant]
     Active Substance: DEXAMETHASONE
  21. LORAZEPAM. [Concomitant]
     Active Substance: LORAZEPAM
     Indication: ANXIETY
     Route: 065
     Dates: start: 20200203
  22. HYDROMORPHONE [Concomitant]
     Active Substance: HYDROMORPHONE
     Indication: PAIN
     Route: 065
     Dates: start: 20200521
  23. CETIRIZINE [Concomitant]
     Active Substance: CETIRIZINE HYDROCHLORIDE
  24. NEOMYCIN SULFATE. [Concomitant]
     Active Substance: NEOMYCIN SULFATE
  25. FENTANYL. [Concomitant]
     Active Substance: FENTANYL
     Indication: PAIN
     Route: 065
     Dates: start: 20201201
  26. MAGNESIUM SULFATE. [Concomitant]
     Active Substance: MAGNESIUM SULFATE
  27. JUNEL [Concomitant]
     Active Substance: ETHINYL ESTRADIOL\NORETHINDRONE ACETATE
  28. ERGOCALCIFEROL. [Concomitant]
     Active Substance: ERGOCALCIFEROL

REACTIONS (3)
  - Proctalgia [Recovered/Resolved]
  - Rectal obstruction [Recovered/Resolved]
  - Rectal haemorrhage [Recovered/Resolved]

NARRATIVE: CASE EVENT DATE: 20201223
